FAERS Safety Report 19277312 (Version 1)
Quarter: 2021Q2

REPORT INFORMATION
  Report Type: Report from Study
  Country: None (occurrence: US)
  Receive Date: 20210519
  Receipt Date: 20210519
  Transmission Date: 20210717
  Serious: Yes (Other)
  Sender: FDA-Public Use
  Company Number: US-ABBVIE-21K-163-3906895-00

PATIENT
  Sex: Female

DRUGS (1)
  1. RINVOQ [Suspect]
     Active Substance: UPADACITINIB
     Indication: RHEUMATOID ARTHRITIS
     Route: 048

REACTIONS (7)
  - Arthropathy [Unknown]
  - Neck pain [Unknown]
  - Elbow operation [Unknown]
  - Musculoskeletal stiffness [Not Recovered/Not Resolved]
  - Thermal burn [Unknown]
  - Carpal tunnel syndrome [Unknown]
  - Fall [Unknown]

NARRATIVE: CASE EVENT DATE: 2020
